FAERS Safety Report 10045705 (Version 1)
Quarter: 2014Q1

REPORT INFORMATION
  Report Type: Spontaneous
  Country: US (occurrence: None)
  Receive Date: 20140306
  Receipt Date: 20140306
  Transmission Date: 20141002
  Serious: Yes (Hospitalization)
  Sender: FDA-Public Use
  Company Number: 163-21880-13054766

PATIENT
  Age: 71 Year
  Sex: Female

DRUGS (9)
  1. REVLIMID (LENALIDOMIDE) (25 MILLIGRAM, CAPSULES) [Suspect]
     Indication: PLASMA CELL MYELOMA
     Route: 048
     Dates: start: 201103
  2. AMLODIPINE BESYLATE (AMLODIPINE BESILATE) [Concomitant]
  3. CYCLOBENZAPRINE HCL (CYCLOBENZAPRINE HYDROCHLORIDE) [Concomitant]
  4. FUROSEMIDE (FUROSEMIDE) [Concomitant]
  5. MEGESTROL ACETATE (MEGESTROL ACETATE) [Concomitant]
  6. OMEPRAZOLE (OMEPRAZOLE) [Concomitant]
  7. MULTIVITAMINS (MULTIVITAMINS) [Concomitant]
  8. SERTRALINE HCL (SERTRALINE HYDROCHLORIDE) [Concomitant]
  9. STOOL SOFTENER (DOCUSATE SODIUM) [Concomitant]

REACTIONS (3)
  - White blood cell count decreased [None]
  - Anaemia [None]
  - Cystitis [None]
